FAERS Safety Report 17729456 (Version 2)
Quarter: 2021Q3

REPORT INFORMATION
  Report Type: Spontaneous
  Country: FR (occurrence: FR)
  Receive Date: 20200430
  Receipt Date: 20210706
  Transmission Date: 20211014
  Serious: Yes (Other)
  Sender: FDA-Public Use
  Company Number: NVSC2020FR116913

PATIENT
  Age: 67 Year
  Sex: Female
  Weight: 50 kg

DRUGS (12)
  1. TACROLIMUS. [Suspect]
     Active Substance: TACROLIMUS
     Indication: IMMUNOSUPPRESSION
     Dosage: 3 MG, QD
     Route: 048
     Dates: start: 20171005
  2. CERTICAN [Concomitant]
     Active Substance: EVEROLIMUS
     Dosage: UNK (1 UNK, TOTAL DAILY DOSE)
     Route: 065
     Dates: start: 20180829
  3. CERTICAN [Concomitant]
     Active Substance: EVEROLIMUS
     Dosage: UNK (3.5 UNK, TOTAL DAILY DOSE)
     Route: 065
     Dates: start: 20180626, end: 20180725
  4. TACROLIMUS. [Interacting]
     Active Substance: TACROLIMUS
     Dosage: UNK (DOSE REDUCED)
     Route: 048
  5. CERTICAN [Concomitant]
     Active Substance: EVEROLIMUS
     Dosage: UNK (2 UNK, TOTAL DAILY DOSE)
     Route: 065
     Dates: start: 20180726, end: 20180808
  6. CORTANCYL [Concomitant]
     Active Substance: PREDNISONE
     Dosage: UNK (5 UNK, TOTAL DAILY DOSE)
     Route: 065
     Dates: start: 20180526
  7. FELODIPINE. [Interacting]
     Active Substance: FELODIPINE
     Indication: HYPERTENSION
     Dosage: UNK
     Route: 065
  8. CORTANCYL [Concomitant]
     Active Substance: PREDNISONE
     Indication: IMMUNOSUPPRESSION
     Dosage: UNK (5 UNK, TOTAL DAILY DOSE)
     Route: 065
     Dates: start: 20170831, end: 20180515
  9. CORTANCYL [Concomitant]
     Active Substance: PREDNISONE
     Dosage: UNK (10 UNK, TOTAL DAILY DOSE)
     Route: 065
     Dates: start: 20180516, end: 20180525
  10. CERTICAN [Concomitant]
     Active Substance: EVEROLIMUS
     Dosage: UNK (1.5 UNK, TOTAL DAILY DOSE)
     Route: 065
     Dates: start: 20180809, end: 20180828
  11. MYFORTIC [Concomitant]
     Active Substance: MYCOPHENOLATE SODIUM
     Indication: IMMUNOSUPPRESSION
     Dosage: UNK (720 UNK, TOTAL DAILY DOSE)
     Route: 065
     Dates: start: 20170812, end: 20180515
  12. CERTICAN [Concomitant]
     Active Substance: EVEROLIMUS
     Indication: IMMUNOSUPPRESSION
     Dosage: UNK (2 UNK, TOTAL DAILY DOSE)
     Route: 065
     Dates: start: 20180516, end: 20180625

REACTIONS (2)
  - Drug interaction [Unknown]
  - Acute kidney injury [Recovered/Resolved]

NARRATIVE: CASE EVENT DATE: 201911
